FAERS Safety Report 5163004-X (Version None)
Quarter: 2006Q4

REPORT INFORMATION
  Report Type: 
  Country: None (occurrence: None)
  Receive Date: 20061201
  Receipt Date: 20061005
  Transmission Date: 20070319
  Serious: Yes (Other)
  Sender: FDA-Public Use
  Company Number: PHHO2006AU16813

PATIENT
  Age: 46 Year
  Sex: Male

DRUGS (6)
  1. PREDNISOLONE [Concomitant]
     Indication: MULTIPLE MYELOMA
     Dosage: 25 MG, EVERY 48 HOURS
     Route: 048
     Dates: start: 20050310
  2. THALIDOMIDE [Concomitant]
     Indication: MULTIPLE MYELOMA
     Dosage: 100 MG, QD
     Route: 048
     Dates: start: 20050310
  3. ANTIBIOTICS [Concomitant]
  4. CHEMOTHERAPEUTICS,OTHER [Concomitant]
  5. CORTICOSTEROIDS [Concomitant]
  6. ZOLEDRONIC ACID [Suspect]
     Indication: MULTIPLE MYELOMA
     Dosage: 4 MG, MONTHLY
     Route: 042
     Dates: start: 20050310, end: 20060119

REACTIONS (9)
  - BONE DEBRIDEMENT [None]
  - DENTAL TREATMENT [None]
  - ERYTHEMA [None]
  - JAW OPERATION [None]
  - OSTEOMYELITIS [None]
  - OSTEONECROSIS [None]
  - PAIN IN JAW [None]
  - SOFT TISSUE INFECTION [None]
  - SWELLING [None]
